FAERS Safety Report 10357440 (Version 2)
Quarter: 2014Q3

REPORT INFORMATION
  Report Type: Spontaneous
  Country: BR (occurrence: BR)
  Receive Date: 20140801
  Receipt Date: 20140808
  Transmission Date: 20150326
  Serious: Yes (Hospitalization, Other)
  Sender: FDA-Public Use
  Company Number: BR-PFIZER INC-2014212827

PATIENT
  Age: 72 Year
  Sex: Male
  Weight: 52 kg

DRUGS (25)
  1. DOMPERIDONE [Suspect]
     Active Substance: DOMPERIDONE
     Indication: RENAL FAILURE CHRONIC
  2. ENALAPRIL MALEATE. [Suspect]
     Active Substance: ENALAPRIL MALEATE
     Dosage: 1 DF (20 MG), QD
  3. COMPLEX B [Suspect]
     Active Substance: CALCIUM PANTOTHENATE\CYANOCOBALAMIN\NIACINAMIDE\PYRIDOXINE HYDROCHLORIDE\RIBOFLAVIN\THIAMINE MONONITRATE
     Indication: HYPERTENSION
     Dosage: 3 DF (10 MG), QD
     Route: 048
     Dates: start: 2011
  4. OXIMAX [Suspect]
     Active Substance: MOMETASONE FUROATE
     Indication: CHRONIC OBSTRUCTIVE PULMONARY DISEASE
     Dosage: 1 DF (400 MG), QD
     Route: 055
  5. FOLIC ACID. [Suspect]
     Active Substance: FOLIC ACID
     Indication: HYPERTENSION
     Dosage: 1 DF(10 MG), QD
     Route: 048
     Dates: start: 2011
  6. FOLIC ACID. [Suspect]
     Active Substance: FOLIC ACID
     Indication: RENAL FAILURE CHRONIC
  7. PANTOPRAZOLE [Suspect]
     Active Substance: PANTOPRAZOLE SODIUM
     Indication: RENAL FAILURE CHRONIC
  8. AMLODIPINE BESILATE [Suspect]
     Active Substance: AMLODIPINE BESYLATE
     Indication: HYPERTENSION
     Dosage: 2 DF (10 MG), QD
     Route: 048
     Dates: start: 2011
  9. DIOVAN AMLO FIX [Suspect]
     Active Substance: AMLODIPINE\VALSARTAN
     Indication: HYPERTENSION
     Dosage: 1 DF (320/10 MG), QD
     Route: 048
     Dates: end: 2011
  10. SINGULAIR [Suspect]
     Active Substance: MONTELUKAST SODIUM
     Indication: RENAL FAILURE CHRONIC
  11. AMLODIPINE BESILATE [Suspect]
     Active Substance: AMLODIPINE BESYLATE
     Indication: RENAL FAILURE CHRONIC
  12. DAXAS [Suspect]
     Active Substance: ROFLUMILAST
     Indication: RENAL FAILURE CHRONIC
  13. APRESOLIN [Suspect]
     Active Substance: HYDRALAZINE HYDROCHLORIDE
     Indication: RENAL FAILURE CHRONIC
     Dosage: 3 DF (25 MG), QD
     Route: 048
     Dates: start: 2011
  14. ONBREZ [Suspect]
     Active Substance: INDACATEROL
     Indication: CHRONIC OBSTRUCTIVE PULMONARY DISEASE
     Dosage: 1 DF(150 MCG), QD
     Route: 055
     Dates: start: 2011
  15. DIOVAN [Suspect]
     Active Substance: VALSARTAN
     Indication: RENAL FAILURE CHRONIC
  16. DIOVAN AMLO FIX [Suspect]
     Active Substance: AMLODIPINE\VALSARTAN
     Indication: RENAL FAILURE CHRONIC
  17. DAXAS [Suspect]
     Active Substance: ROFLUMILAST
     Indication: HYPERTENSION
     Dosage: 1 DF, 1X/DAY
     Route: 048
     Dates: start: 2011
  18. DOMPERIDONE [Suspect]
     Active Substance: DOMPERIDONE
     Indication: HYPERTENSION
     Dosage: 2 DF (10 MG), QD
     Route: 048
     Dates: start: 2011
  19. PANTOPRAZOLE [Suspect]
     Active Substance: PANTOPRAZOLE SODIUM
     Indication: HYPERTENSION
     Dosage: 1 DF (40 MG), QD
     Route: 048
     Dates: start: 2011
  20. SPIRIVA [Suspect]
     Active Substance: TIOTROPIUM BROMIDE MONOHYDRATE
     Indication: CHRONIC OBSTRUCTIVE PULMONARY DISEASE
     Dosage: 1 DF, 1X/DAY
     Route: 055
  21. APRESOLIN [Suspect]
     Active Substance: HYDRALAZINE HYDROCHLORIDE
     Indication: HYPERTENSION
     Dosage: 0.5 DF (50 MG), QD
     Route: 048
     Dates: start: 2011
  22. COMPLEX B [Suspect]
     Active Substance: CALCIUM PANTOTHENATE\CYANOCOBALAMIN\NIACINAMIDE\PYRIDOXINE HYDROCHLORIDE\RIBOFLAVIN\THIAMINE MONONITRATE
     Indication: RENAL FAILURE CHRONIC
  23. DIOVAN [Suspect]
     Active Substance: VALSARTAN
     Indication: HYPERTENSION
     Dosage: 2 DF (160 MG), QD
     Route: 048
     Dates: start: 2011
  24. ENALAPRIL MALEATE. [Suspect]
     Active Substance: ENALAPRIL MALEATE
     Dosage: 2 DF (10 MG), QD
  25. SINGULAIR [Suspect]
     Active Substance: MONTELUKAST SODIUM
     Indication: HYPERTENSION
     Dosage: 1 DF (10 MG), QD
     Route: 048
     Dates: start: 2011

REACTIONS (3)
  - Pneumonia [Recovered/Resolved]
  - Hypertension [Recovered/Resolved]
  - Off label use [Unknown]

NARRATIVE: CASE EVENT DATE: 201309
